FAERS Safety Report 9495130 (Version 1)
Quarter: 2013Q3

REPORT INFORMATION
  Report Type: Spontaneous
  Country: BR (occurrence: BR)
  Receive Date: 20130903
  Receipt Date: 20130903
  Transmission Date: 20140515
  Serious: Yes (Other)
  Sender: FDA-Public Use
  Company Number: BR-SANOFI-AVENTIS-2013SA086680

PATIENT
  Sex: Female
  Weight: 84 kg

DRUGS (2)
  1. LANTUS [Suspect]
     Indication: TYPE 1 DIABETES MELLITUS
     Route: 058
     Dates: start: 2007
  2. LANTUS [Suspect]
     Indication: TYPE 1 DIABETES MELLITUS
     Route: 058

REACTIONS (5)
  - Epilepsy [Recovering/Resolving]
  - Convulsion [Recovering/Resolving]
  - Dizziness [Recovering/Resolving]
  - Drug administration error [Unknown]
  - Retching [Recovering/Resolving]
